FAERS Safety Report 4463567-3 (Version None)
Quarter: 2004Q3

REPORT INFORMATION
  Report Type: 
  Country: None (occurrence: None)
  Receive Date: 20040917
  Receipt Date: 20040629
  Transmission Date: 20050211
  Serious: No
  Sender: FDA-Public Use
  Company Number: US-JNJFOC-20040202970

PATIENT
  Age: 23 Year
  Sex: Female
  Weight: 61.0542 kg

DRUGS (1)
  1. ORTHO EVRA [Suspect]
     Indication: CONTRACEPTION
     Dosage: 1 DOSE(S), 3 IN 4 WEEK, TRANSDERMAL
     Route: 062
     Dates: start: 20030301, end: 20030501

REACTIONS (3)
  - APPLICATION SITE REACTION [None]
  - FAT ATROPHY [None]
  - SKIN HYPERPIGMENTATION [None]
